FAERS Safety Report 9861655 (Version 1)
Quarter: 2014Q1

REPORT INFORMATION
  Report Type: Spontaneous
  Country: US (occurrence: None)
  Receive Date: 20140130
  Receipt Date: 20140130
  Transmission Date: 20141002
  Serious: Yes (Death)
  Sender: FDA-Public Use
  Company Number: 2014AP000730

PATIENT
  Age: 60 Year
  Sex: Male

DRUGS (5)
  1. QUETIAPINE FUMARATE [Suspect]
  2. CITALOPRAM [Suspect]
  3. HEROIN [Suspect]
  4. DOXEPIN [Suspect]
  5. ETHANOL [Suspect]

REACTIONS (2)
  - Drug abuse [None]
  - Exposure via ingestion [None]
